FAERS Safety Report 8790699 (Version 1)
Quarter: 2012Q4

REPORT INFORMATION
  Report Type: Spontaneous
  Country: US (occurrence: None)
  Receive Date: 20120913
  Receipt Date: 20120913
  Transmission Date: 20130627
  Serious: Yes (Hospitalization, Other)
  Sender: FDA-Public Use
  Company Number: None

PATIENT
  Age: 86 Year
  Sex: Male
  Weight: 92.53 kg

DRUGS (1)
  1. FLUOROURACIL [Suspect]
     Indication: PRECANCEROUS SKIN LESION
     Dosage: Forehead, Temple, Ears Beadtime for two weeks topical
     Route: 061
     Dates: start: 20120622, end: 20120706

REACTIONS (1)
  - Cerebrovascular accident [None]
